FAERS Safety Report 5276496-2 (Version None)
Quarter: 2007Q1

REPORT INFORMATION
  Report Type: 
  Country: None (occurrence: None)
  Receive Date: 20061214
  Receipt Date: 20061006
  Transmission Date: 20070707
  Serious: Yes (Hospitalization)
  Sender: FDA-Public Use
  Company Number: 430113K06USA

PATIENT
  Age: 51 Year
  Sex: Male
  Weight: 117.9352 kg

DRUGS (4)
  1. NOVANTRONE [Suspect]
     Indication: MULTIPLE SCLEROSIS
     Dosage: NOT REPORTED, 1 IN 1 MONTHS
  2. HYDROCODONE (HYDROCODONE) [Concomitant]
  3. MARINOL [Concomitant]
  4. DURAGESIC-100 [Concomitant]

REACTIONS (1)
  - MULTIPLE SCLEROSIS [None]
